FAERS Safety Report 4325040-2 (Version None)
Quarter: 2004Q1

REPORT INFORMATION
  Report Type: 
  Country: None (occurrence: None)
  Receive Date: 20040326
  Receipt Date: 20040326
  Transmission Date: 20041129
  Serious: Yes (Hospitalization)
  Sender: FDA-Public Use
  Company Number: None

PATIENT
  Age: 67 Year
  Sex: Female
  Weight: 82 kg

DRUGS (22)
  1. LIPITOR [Suspect]
     Indication: HYPERLIPIDAEMIA
     Dosage: 20 MG QD OCCLUSIVE DR
     Route: 046
     Dates: start: 20040301, end: 20040319
  2. NORVASC [Concomitant]
  3. ECOTRIN [Concomitant]
  4. PLAVIX [Concomitant]
  5. COLACE [Concomitant]
  6. GLIPIZIDE [Concomitant]
  7. CLARITIN [Concomitant]
  8. ZAROXOLYN [Concomitant]
  9. TOPROL-XL [Concomitant]
  10. LAZIX [Concomitant]
  11. CALCITRIOL [Concomitant]
  12. FESO4 [Concomitant]
  13. CIPRO [Concomitant]
  14. AMBIEN [Concomitant]
  15. LEXAPRO [Concomitant]
  16. EPO [Concomitant]
  17. HUMALOG [Concomitant]
  18. HERBALS [Concomitant]
  19. TEAS [Concomitant]
  20. ALTERNATIVE MEDICATIONS [Concomitant]
  21. OTCS [Concomitant]
  22. VITAMIN CAP [Concomitant]

REACTIONS (4)
  - LIVER FUNCTION TEST ABNORMAL [None]
  - NEUTROPENIA [None]
  - THROMBOCYTOPENIA [None]
  - WHITE BLOOD CELL COUNT DECREASED [None]
